FAERS Safety Report 7307498-X (Version None)
Quarter: 2011Q1

REPORT INFORMATION
  Report Type: 
  Country: None (occurrence: None)
  Receive Date: 20110209
  Receipt Date: 20110201
  Transmission Date: 20110831
  Serious: Yes (Other)
  Sender: FDA-Public Use
  Company Number: 2010SP023421

PATIENT
  Age: 40 Year
  Sex: Female

DRUGS (4)
  1. FLUNITRAZEPAM [Concomitant]
  2. QUAZEPAM [Concomitant]
  3. MIRTAZAPINE [Suspect]
     Indication: DEPRESSION
     Dosage: (15 MG; QD; PO) (30 MG; QD; PO)
     Route: 048
     Dates: start: 20100225, end: 20100303
  4. MIRTAZAPINE [Suspect]
     Indication: DEPRESSION
     Dosage: (15 MG; QD; PO) (30 MG; QD; PO)
     Route: 048
     Dates: start: 20100304

REACTIONS (3)
  - FALL [None]
  - DIZZINESS [None]
  - MUSCLE STRAIN [None]
